FAERS Safety Report 14134259 (Version 1)
Quarter: 2017Q4

REPORT INFORMATION
  Report Type: Spontaneous
  Country: US (occurrence: US)
  Receive Date: 20171027
  Receipt Date: 20171027
  Transmission Date: 20180321
  Serious: Yes (Other)
  Sender: FDA-Public Use
  Company Number: None

PATIENT
  Sex: Male
  Weight: 62.1 kg

DRUGS (3)
  1. CINRYZE [Suspect]
     Active Substance: HUMAN C1-ESTERASE INHIBITOR
     Indication: HEREDITARY ANGIOEDEMA
     Dosage: 1000 DF EVERY 3 TO 4 DAYS; INTRAVENOUS?
     Route: 042
     Dates: start: 20150714, end: 20171027
  2. FIRAZYR [Concomitant]
     Active Substance: ICATIBANT ACETATE
  3. KALBITOR [Concomitant]
     Active Substance: ECALLANTIDE

REACTIONS (1)
  - Drug specific antibody present [None]
